FAERS Safety Report 6205278-X (Version None)
Quarter: 2009Q2

REPORT INFORMATION
  Report Type: 
  Country: None (occurrence: None)
  Receive Date: 20090527
  Receipt Date: 20090306
  Transmission Date: 20091009
  Serious: No
  Sender: FDA-Public Use
  Company Number: US-ABBOTT-09P-163-0561319-00

PATIENT
  Sex: Female

DRUGS (4)
  1. SIMCOR [Suspect]
     Indication: BLOOD CHOLESTEROL INCREASED
     Dosage: ONE TABLET AT NIGHT
     Dates: start: 20090206, end: 20090220
  2. SIMCOR [Suspect]
     Dosage: TWO TABLETS AT NIGHT
     Dates: start: 20090221
  3. ALLEGRA [Concomitant]
     Indication: DRUG USE FOR UNKNOWN INDICATION
  4. SYNTHROID [Concomitant]
     Indication: DRUG USE FOR UNKNOWN INDICATION

REACTIONS (1)
  - FLUSHING [None]
